FAERS Safety Report 6090775-0 (Version None)
Quarter: 2009Q1

REPORT INFORMATION
  Report Type: 
  Country: None (occurrence: None)
  Receive Date: 20090223
  Receipt Date: 20090209
  Transmission Date: 20090719
  Serious: Yes (Hospitalization)
  Sender: FDA-Public Use
  Company Number: KV200900173

PATIENT
  Age: 36 Year
  Sex: Male

DRUGS (5)
  1. MORPHINE SULFATE [Suspect]
     Indication: BACK PAIN
     Dosage: 60 MG, BID, ORAL
     Route: 048
     Dates: start: 20070101, end: 20090207
  2. LYRICA [Concomitant]
  3. COLACE (DOCUSATE SODIUM) [Concomitant]
  4. SENNA /00142201/ (SENNA ALEXANDRINA) [Concomitant]
  5. MIRALAX [Concomitant]

REACTIONS (3)
  - ABDOMINAL PAIN [None]
  - CONSTIPATION [None]
  - INTESTINAL OBSTRUCTION [None]
